FAERS Safety Report 6742036-1 (Version None)
Quarter: 2010Q2

REPORT INFORMATION
  Report Type: 
  Country: None (occurrence: None)
  Receive Date: 20100526
  Receipt Date: 20100513
  Transmission Date: 20101027
  Serious: Yes (Other)
  Sender: FDA-Public Use
  Company Number: GB-TEVA-235493ISR

PATIENT
  Sex: Female
  Weight: 55 kg

DRUGS (1)
  1. DOXYCYCLINE [Suspect]
     Indication: MALARIA PROPHYLAXIS
     Route: 048
     Dates: start: 20100403, end: 20100427

REACTIONS (2)
  - ALOPECIA [None]
  - PHOTOSENSITIVITY REACTION [None]
